FAERS Safety Report 18405765 (Version 2)
Quarter: 2023Q2

REPORT INFORMATION
  Report Type: Spontaneous
  Country: GB (occurrence: GB)
  Receive Date: 20201020
  Receipt Date: 20230623
  Transmission Date: 20230721
  Serious: Yes (Other)
  Sender: FDA-Public Use
  Company Number: None

PATIENT
  Age: 70 Year
  Sex: Female

DRUGS (3)
  1. AFLIBERCEPT [Suspect]
     Active Substance: AFLIBERCEPT
     Indication: Neovascular age-related macular degeneration
     Dosage: UNK (2MG/50 MICROLITRES)
     Route: 050
     Dates: start: 20200814, end: 20200814
  2. BENOXINATE HYDROCHLORIDE [Concomitant]
     Active Substance: BENOXINATE HYDROCHLORIDE
     Indication: Local anaesthesia
     Dosage: 0.5 ML (0.5ML UNIT DOSE)
     Route: 061
     Dates: start: 20200814, end: 20200814
  3. MINIMS POVIDONE IODINE [Concomitant]
     Indication: Infection prophylaxis
     Dosage: 0.4 ML (0.4ML UNIT DOSE)
     Route: 061
     Dates: start: 20200814, end: 20200814

REACTIONS (7)
  - Iridocyclitis [Recovered/Resolved]
  - Photophobia [Unknown]
  - Conjunctival hyperaemia [Unknown]
  - Pain [Unknown]
  - Visual impairment [Unknown]
  - Vision blurred [Unknown]
  - Anterior chamber cell [Unknown]

NARRATIVE: CASE EVENT DATE: 20200814
